FAERS Safety Report 11649322 (Version 1)
Quarter: 2015Q4

REPORT INFORMATION
  Report Type: Spontaneous
  Country: CA (occurrence: CA)
  Receive Date: 20151021
  Receipt Date: 20151021
  Transmission Date: 20160304
  Serious: Yes (Other)
  Sender: FDA-Public Use
  Company Number: CA-TEVA-601555ACC

PATIENT
  Age: 90 Year
  Sex: Female
  Weight: 68 kg

DRUGS (4)
  1. BACLOFEN. [Concomitant]
     Active Substance: BACLOFEN
  2. LEVODOPA-CARBIDOPA 100-25 [Concomitant]
  3. BACLOFEN. [Suspect]
     Active Substance: BACLOFEN
     Indication: NECK PAIN
     Dosage: 40 MILLIGRAM DAILY;
     Route: 048
  4. HYDROMORPHONE [Concomitant]
     Active Substance: HYDROMORPHONE

REACTIONS (6)
  - Areflexia [Recovered/Resolved]
  - Dystonia [Recovered/Resolved]
  - Hypertension [Recovered/Resolved]
  - Muscle twitching [Recovered/Resolved]
  - Cheyne-Stokes respiration [Recovered/Resolved]
  - Lethargy [Recovered/Resolved]
